FAERS Safety Report 10975835 (Version 1)
Quarter: 2015Q2

REPORT INFORMATION
  Report Type: Spontaneous
  Country: US (occurrence: US)
  Receive Date: 20150401
  Receipt Date: 20150401
  Transmission Date: 20150821
  Serious: No
  Sender: FDA-Public Use
  Company Number: US-ELI_LILLY_AND_COMPANY-US201212002423

PATIENT
  Age: 8 Year
  Sex: Male

DRUGS (4)
  1. HUMATROPE [Suspect]
     Active Substance: SOMATROPIN
     Indication: GROWTH HORMONE DEFICIENCY
     Dosage: 1.2 MG, EACH EVENING
     Dates: start: 201209
  2. HUMATROPE [Suspect]
     Active Substance: SOMATROPIN
     Dosage: 1.4 MG, QD
     Route: 065
  3. HUMATROPE [Suspect]
     Active Substance: SOMATROPIN
     Dosage: UNK, UNKNOWN
  4. HUMATROPE [Suspect]
     Active Substance: SOMATROPIN
     Dosage: UNK, UNKNOWN

REACTIONS (1)
  - Incorrect dose administered [Unknown]

NARRATIVE: CASE EVENT DATE: 20121204
